FAERS Safety Report 5392867-8 (Version None)
Quarter: 2007Q3

REPORT INFORMATION
  Report Type: 
  Country: None (occurrence: None)
  Receive Date: 20070720
  Receipt Date: 20070709
  Transmission Date: 20080115
  Serious: Yes (Other)
  Sender: FDA-Public Use
  Company Number: US-PFIZER INC-2007057460

PATIENT
  Sex: Female

DRUGS (15)
  1. LIPITOR [Suspect]
     Indication: BLOOD CHOLESTEROL INCREASED
  2. LYRICA [Suspect]
     Indication: FIBROMYALGIA
  3. METHOTREXATE [Suspect]
     Indication: INFLAMMATION
  4. METHOTREXATE [Suspect]
     Indication: RHEUMATOID ARTHRITIS
  5. PREDNISONE [Suspect]
     Indication: INFLAMMATION
  6. PREDNISONE [Suspect]
     Indication: RHEUMATOID ARTHRITIS
  7. STATINS [Suspect]
     Indication: BLOOD CHOLESTEROL INCREASED
  8. ZETIA [Concomitant]
  9. ACETYLSALICYLIC ACID SRT [Concomitant]
  10. VITAMIN CAP [Concomitant]
  11. ZYRTEC [Concomitant]
  12. VALIUM [Concomitant]
  13. PINDOLOL [Concomitant]
  14. QUININE [Concomitant]
  15. TYLENOL ARTHRITIS [Concomitant]

REACTIONS (12)
  - BLOOD CHOLESTEROL INCREASED [None]
  - BLOOD GLUCOSE INCREASED [None]
  - DIZZINESS [None]
  - EPSTEIN-BARR VIRUS INFECTION [None]
  - FATIGUE [None]
  - FIBROMYALGIA [None]
  - HANGOVER [None]
  - MUSCULOSKELETAL STIFFNESS [None]
  - MYALGIA [None]
  - PSYCHOMOTOR HYPERACTIVITY [None]
  - VISION BLURRED [None]
  - WEIGHT INCREASED [None]
